FAERS Safety Report 5167637-6 (Version None)
Quarter: 2006Q4

REPORT INFORMATION
  Report Type: 
  Country: None (occurrence: None)
  Receive Date: 20061204
  Receipt Date: 20061204
  Transmission Date: 20070319
  Serious: Yes (Hospitalization)
  Sender: FDA-Public Use
  Company Number: None

PATIENT
  Age: 67 Year
  Weight: 103.1 kg

DRUGS (2)
  1. AZITHROMYCIN [Suspect]
     Indication: INFECTION
     Dosage: Z PAK QD PO
     Route: 048
  2. WARFARIN SODIUM [Suspect]
     Indication: ATRIAL FIBRILLATION
     Dosage: 7.5 MG QD PO
     Route: 048

REACTIONS (4)
  - ANAEMIA [None]
  - CHEST PAIN [None]
  - HAEMORRHAGE [None]
  - INTERNATIONAL NORMALISED RATIO INCREASED [None]
